FAERS Safety Report 19507593 (Version 2)
Quarter: 2021Q3

REPORT INFORMATION
  Report Type: Spontaneous
  Country: DE (occurrence: DE)
  Receive Date: 20210708
  Receipt Date: 20210712
  Transmission Date: 20211014
  Serious: Yes (Death, Other)
  Sender: FDA-Public Use
  Company Number: DE-GILEAD-2021-0539641

PATIENT
  Age: 58 Year
  Sex: Male
  Weight: 67 kg

DRUGS (15)
  1. AMPHO MORONAL [Concomitant]
     Active Substance: AMPHOTERICIN B
     Route: 048
  2. TECARTUS [Suspect]
     Active Substance: BREXUCABTAGENE AUTOLEUCEL
     Indication: MANTLE CELL LYMPHOMA
     Dosage: UNK
     Route: 042
     Dates: start: 20210528
  3. SIMBRINZA [Concomitant]
     Active Substance: BRIMONIDINE TARTRATE\BRINZOLAMIDE
  4. TOREM [TORASEMIDE] [Concomitant]
     Active Substance: TORSEMIDE
     Route: 048
  5. FLUDARABINE [Concomitant]
     Active Substance: FLUDARABINE PHOSPHATE
  6. CYCLOPHOSPHAMIDE. [Concomitant]
     Active Substance: CYCLOPHOSPHAMIDE
  7. FOLIC ACID. [Concomitant]
     Active Substance: FOLIC ACID
  8. ACICLOVIR [Concomitant]
     Active Substance: ACYCLOVIR
     Dosage: 400 MG
     Route: 048
  9. LATANOPROST. [Concomitant]
     Active Substance: LATANOPROST
     Route: 048
  10. RITUXIMAB. [Concomitant]
     Active Substance: RITUXIMAB
     Dosage: UNK
     Dates: start: 20210520
  11. POTASSIUM [Concomitant]
     Active Substance: POTASSIUM
  12. COTRIM FORTE [Concomitant]
     Active Substance: SULFAMETHOXAZOLE\TRIMETHOPRIM
     Dosage: UNK
     Route: 048
  13. PANTOPRAZOLE [Concomitant]
     Active Substance: PANTOPRAZOLE
     Dosage: 40 MG
     Route: 048
  14. NOXAFIL [Concomitant]
     Active Substance: POSACONAZOLE
     Dosage: 100 MG
     Route: 048
  15. SUMMAVIT [VITAMINS NOS] [Concomitant]
     Route: 048

REACTIONS (1)
  - Death [Fatal]

NARRATIVE: CASE EVENT DATE: 20210622
